FAERS Safety Report 23309285 (Version 1)
Quarter: 2023Q4

REPORT INFORMATION
  Report Type: Spontaneous
  Country: US (occurrence: US)
  Receive Date: 20231218
  Receipt Date: 20231218
  Transmission Date: 20240110
  Serious: Yes (Death)
  Sender: FDA-Public Use
  Company Number: US-PERRIGO-23US014571

PATIENT
  Age: 68 Year
  Sex: Female

DRUGS (10)
  1. ACETAMINOPHEN [Suspect]
     Active Substance: ACETAMINOPHEN
     Indication: Intentional product misuse
     Dosage: UNK
     Route: 048
  2. ACETAMINOPHEN\HYDROCODONE [Suspect]
     Active Substance: ACETAMINOPHEN\HYDROCODONE
     Indication: Intentional product misuse
     Dosage: UNK
     Route: 048
  3. VITAMIN B [Suspect]
     Active Substance: VITAMIN B
     Indication: Intentional product misuse
     Dosage: UNK
     Route: 048
  4. MAGNESIUM [Suspect]
     Active Substance: MAGNESIUM
     Indication: Intentional product misuse
     Dosage: UNK
     Route: 048
  5. HERBALS\TURMERIC [Suspect]
     Active Substance: HERBALS\TURMERIC
     Indication: Intentional product misuse
     Dosage: UNK
     Route: 048
  6. GLUCOSAMINE [Suspect]
     Active Substance: GLUCOSAMINE
     Indication: Intentional product misuse
     Dosage: UNK
     Route: 048
  7. CHOLECALCIFEROL [Suspect]
     Active Substance: CHOLECALCIFEROL
     Indication: Intentional product misuse
     Dosage: UNK
     Route: 048
  8. HYALURONIC ACID [Suspect]
     Active Substance: HYALURONIC ACID
     Indication: Intentional product misuse
     Dosage: UNK
     Route: 048
  9. BIFIDOBACTERIUM LONGUM [Suspect]
     Active Substance: BIFIDOBACTERIUM LONGUM
     Indication: Intentional product misuse
     Dosage: UNK
     Route: 048
  10. HERBALS [Suspect]
     Active Substance: HERBALS
     Indication: Intentional product misuse
     Dosage: UNK
     Route: 048

REACTIONS (1)
  - Exposure to toxic agent [Fatal]

NARRATIVE: CASE EVENT DATE: 20220101
